FAERS Safety Report 9734426 (Version 3)
Quarter: 2014Q1

REPORT INFORMATION
  Report Type: Spontaneous
  Country: US (occurrence: US)
  Receive Date: 20131206
  Receipt Date: 20140110
  Transmission Date: 20141002
  Serious: Yes (Hospitalization, Other)
  Sender: FDA-Public Use
  Company Number: US-BEH-2013037443

PATIENT
  Sex: Female
  Weight: 78 kg

DRUGS (26)
  1. PRIVIGEN [Suspect]
     Route: 042
     Dates: start: 20130730
  2. PRIVIGEN [Suspect]
     Indication: IMMUNODEFICIENCY COMMON VARIABLE
     Route: 042
     Dates: start: 20130730
  3. PRIVIGEN [Suspect]
     Route: 042
  4. PRIVIGEN [Suspect]
     Route: 042
  5. PRIVIGEN [Suspect]
     Dosage: 5 GM VIAL
     Route: 042
  6. PRIVIGEN [Suspect]
     Dosage: 10 GM VIAL
     Route: 042
  7. PRIVIGEN [Suspect]
     Dosage: 10% SOLUTION, 5 G AND 10 G VIALS, BATCH NUMBER NOT PROVIDED
     Route: 042
  8. CIPRO [Concomitant]
  9. CELEBREX [Concomitant]
  10. PATANASE [Concomitant]
  11. NASONEX [Concomitant]
  12. PRAVASTATIN [Concomitant]
  13. ASPIRIN [Concomitant]
  14. PROMETHAZINE [Concomitant]
  15. VENTOLIN [Concomitant]
  16. SYMBICORT [Concomitant]
  17. TOPROL [Concomitant]
  18. LEVOTHYROXINE [Concomitant]
  19. TRIAMTERENE [Concomitant]
  20. ALBUTEROL [Concomitant]
  21. BENZONATATE [Concomitant]
  22. IBUPROFEN [Concomitant]
  23. QVAR [Concomitant]
  24. DEXILANT [Concomitant]
  25. MACRODANTIN [Concomitant]
  26. TRIAMTERENE HCTZ [Concomitant]

REACTIONS (16)
  - Pneumonia [Unknown]
  - Respiratory tract infection [Unknown]
  - Urinary tract infection [Unknown]
  - Ear infection [Unknown]
  - Eye infection [Unknown]
  - Ear infection [Unknown]
  - Rhinitis [Unknown]
  - Pharyngitis [Unknown]
  - Upper respiratory tract infection [Unknown]
  - Urinary tract infection [Unknown]
  - Ear infection [Unknown]
  - Sinusitis [Unknown]
  - Sinusitis [Unknown]
  - Urinary tract infection [Unknown]
  - Ear infection [Unknown]
  - Sinusitis [Unknown]
